FAERS Safety Report 10953180 (Version 1)
Quarter: 2015Q1

REPORT INFORMATION
  Report Type: Spontaneous
  Country: US (occurrence: None)
  Receive Date: 20150323
  Receipt Date: 20150323
  Transmission Date: 20150721
  Serious: Yes (Hospitalization)
  Sender: FDA-Public Use
  Company Number: ABR_02110_2015

PATIENT
  Sex: Female
  Weight: 70.31 kg

DRUGS (2)
  1. EDARBYCLOR [Suspect]
     Active Substance: AZILSARTAN KAMEDOXOMIL\CHLORTHALIDONE
     Indication: HYPERTENSION
     Route: 048
     Dates: start: 201501, end: 20150307
  2. SIMVASTATIN. [Concomitant]
     Active Substance: SIMVASTATIN

REACTIONS (8)
  - Rhinorrhoea [None]
  - Blood pressure increased [None]
  - Lethargy [None]
  - Pulse abnormal [None]
  - Palpitations [None]
  - Muscle spasms [None]
  - Weight increased [None]
  - Neuropathy peripheral [None]

NARRATIVE: CASE EVENT DATE: 2015
